FAERS Safety Report 23195115 (Version 1)
Quarter: 2023Q4

REPORT INFORMATION
  Report Type: Report from Study
  Country: GB (occurrence: GB)
  Receive Date: 20231117
  Receipt Date: 20231117
  Transmission Date: 20240109
  Serious: Yes (Other)
  Sender: FDA-Public Use
  Company Number: GB-CELLTRION INC.-2023GB016912

PATIENT

DRUGS (2)
  1. INFLIXIMAB [Suspect]
     Active Substance: INFLIXIMAB
     Indication: Product used for unknown indication
     Dosage: UNKNOWN
     Route: 065
  2. ETANERCEPT [Suspect]
     Active Substance: ETANERCEPT
     Indication: Behcet^s syndrome
     Dosage: 50 MILLIGRAM, EVERY 1 WEEK
     Route: 058
     Dates: start: 20230804

REACTIONS (11)
  - Fall [Unknown]
  - Ill-defined disorder [Unknown]
  - Ill-defined disorder [Not Recovered/Not Resolved]
  - Impaired quality of life [Unknown]
  - Nausea [Unknown]
  - Fatigue [Unknown]
  - Mental disorder [Unknown]
  - Pain [Unknown]
  - Paraesthesia [Unknown]
  - COVID-19 [Recovered/Resolved]
  - Product use in unapproved indication [Unknown]
